FAERS Safety Report 6793406-7 (Version None)
Quarter: 2010Q2

REPORT INFORMATION
  Report Type: 
  Country: None (occurrence: None)
  Receive Date: 20100624
  Receipt Date: 20100416
  Transmission Date: 20101027
  Serious: Yes (Other)
  Sender: FDA-Public Use
  Company Number: US-MYLANLABS-2010S1002180

PATIENT
  Age: 52 Year
  Sex: Female
  Weight: 72.58 kg

DRUGS (5)
  1. CLOZAPINE [Suspect]
     Indication: SCHIZOPHRENIA
     Route: 048
     Dates: start: 20090801, end: 20100216
  2. CHEMOTHERAPEUTICS NOS [Suspect]
     Indication: NEOPLASM MALIGNANT
  3. LORAZEPAM [Concomitant]
     Indication: NAUSEA
  4. CLONAZEPAM [Concomitant]
  5. TOPIRAMATE [Concomitant]

REACTIONS (2)
  - GRANULOCYTOPENIA [None]
  - LEUKOPENIA [None]
